FAERS Safety Report 26204365 (Version 1)
Quarter: 2025Q4

REPORT INFORMATION
  Report Type: Report from Study
  Country: EG (occurrence: EG)
  Receive Date: 20251226
  Receipt Date: 20251226
  Transmission Date: 20260117
  Serious: Yes (Other)
  Sender: ASTELLAS
  Company Number: EG-ASTELLAS-2025-AER-057891

PATIENT
  Age: 67 Year
  Sex: Male
  Weight: 68 kg

DRUGS (5)
  1. PADCEV [Suspect]
     Active Substance: ENFORTUMAB VEDOTIN-EJFV
     Indication: Bladder cancer
     Route: 042
     Dates: start: 20251018
  2. PADCEV [Suspect]
     Active Substance: ENFORTUMAB VEDOTIN-EJFV
     Route: 042
     Dates: start: 20251108
  3. PADCEV [Suspect]
     Active Substance: ENFORTUMAB VEDOTIN-EJFV
     Route: 042
     Dates: start: 20251129
  4. PADCEV [Suspect]
     Active Substance: ENFORTUMAB VEDOTIN-EJFV
     Route: 042
     Dates: start: 20251213
  5. KEYTRUDA [Concomitant]
     Active Substance: PEMBROLIZUMAB
     Indication: Product used for unknown indication
     Route: 065

REACTIONS (56)
  - Contracted bladder [Unknown]
  - Haemorrhage urinary tract [Not Recovered/Not Resolved]
  - Skin atrophy [Unknown]
  - Sensitive skin [Unknown]
  - Skin discomfort [Unknown]
  - Dermatitis [Unknown]
  - Skin injury [Unknown]
  - Emotional distress [Unknown]
  - Dysuria [Unknown]
  - Cough [Recovered/Resolved]
  - Chromaturia [Unknown]
  - Ocular hyperaemia [Unknown]
  - Respiratory tract congestion [Unknown]
  - Vision blurred [Recovered/Resolved]
  - Fatigue [Recovered/Resolved]
  - Dry mouth [Recovered/Resolved]
  - Underdose [Unknown]
  - Skin irritation [Not Recovered/Not Resolved]
  - Pruritus [Not Recovered/Not Resolved]
  - Rash [Not Recovered/Not Resolved]
  - Urine odour abnormal [Unknown]
  - Abdominal discomfort [Not Recovered/Not Resolved]
  - Constipation [Not Recovered/Not Resolved]
  - Urinary incontinence [Recovering/Resolving]
  - Nocturia [Recovering/Resolving]
  - Pain in extremity [Recovering/Resolving]
  - Abdominal pain [Unknown]
  - Chest discomfort [Recovered/Resolved]
  - Productive cough [Recovered/Resolved]
  - Wheezing [Recovered/Resolved]
  - Pain in extremity [Recovering/Resolving]
  - Mobility decreased [Recovering/Resolving]
  - Dry mouth [Recovering/Resolving]
  - Back pain [Recovering/Resolving]
  - Malaise [Unknown]
  - Infusion site erythema [Not Recovered/Not Resolved]
  - Infusion site pain [Not Recovered/Not Resolved]
  - Infusion site swelling [Not Recovered/Not Resolved]
  - Nasopharyngitis [Recovering/Resolving]
  - Dry skin [Not Recovered/Not Resolved]
  - Tongue discolouration [Recovering/Resolving]
  - Infusion site bruising [Recovering/Resolving]
  - Loose tooth [Not Recovered/Not Resolved]
  - Chest discomfort [Unknown]
  - Bone pain [Recovering/Resolving]
  - Balance disorder [Recovering/Resolving]
  - Arthralgia [Recovering/Resolving]
  - Gait disturbance [Recovering/Resolving]
  - Skin exfoliation [Unknown]
  - Skin discolouration [Unknown]
  - Facial pain [Unknown]
  - Ocular discomfort [Unknown]
  - Gingival swelling [Unknown]
  - Hyperaesthesia teeth [Unknown]
  - Palatal swelling [Unknown]
  - Pain in jaw [Unknown]

NARRATIVE: CASE EVENT DATE: 20250101
